FAERS Safety Report 7844866-1 (Version None)
Quarter: 2011Q4

REPORT INFORMATION
  Report Type: 
  Country: None (occurrence: None)
  Receive Date: 20111025
  Receipt Date: 20111018
  Transmission Date: 20120403
  Serious: Yes (Life-Threatening, Hospitalization)
  Sender: FDA-Public Use
  Company Number: RO-GLAXOSMITHKLINE-B0757598A

PATIENT
  Sex: Male

DRUGS (3)
  1. FLUTICASONE PROPIONATE/SALMETEROL [Concomitant]
     Indication: ASTHMA
     Route: 065
     Dates: start: 20060101
  2. TIOTROPIUM [Concomitant]
     Indication: ASTHMA
     Route: 065
     Dates: start: 20110701
  3. VENTOLIN [Suspect]
     Indication: SPIROMETRY
     Route: 055

REACTIONS (1)
  - ASTHMATIC CRISIS [None]
